FAERS Safety Report 7387057-3 (Version None)
Quarter: 2011Q1

REPORT INFORMATION
  Report Type: 
  Country: None (occurrence: None)
  Receive Date: 20110331
  Receipt Date: 20110208
  Transmission Date: 20110831
  Serious: Yes (Hospitalization)
  Sender: FDA-Public Use
  Company Number: ES-MERCK-1102ESP00014

PATIENT
  Age: 79 Year
  Sex: Male

DRUGS (3)
  1. COZAAR [Suspect]
     Indication: CARDIAC FAILURE CONGESTIVE
     Route: 048
     Dates: start: 20101121, end: 20101207
  2. SPIRONOLACTONE [Suspect]
     Indication: CARDIAC FAILURE CONGESTIVE
     Route: 048
     Dates: start: 20101122, end: 20101207
  3. FUROSEMIDE [Suspect]
     Indication: CARDIAC FAILURE CONGESTIVE
     Route: 048
     Dates: start: 20080101, end: 20101207

REACTIONS (3)
  - DRUG INTERACTION [None]
  - RENAL FAILURE CHRONIC [None]
  - HYPERKALAEMIA [None]
